FAERS Safety Report 5793389-2 (Version None)
Quarter: 2008Q2

REPORT INFORMATION
  Report Type: 
  Country: None (occurrence: None)
  Receive Date: 20080627
  Receipt Date: 20080624
  Transmission Date: 20081010
  Serious: Yes (Hospitalization)
  Sender: FDA-Public Use
  Company Number: GB-ROCHE-569574

PATIENT
  Sex: Male
  Weight: 197 kg

DRUGS (16)
  1. ORLISTAT [Suspect]
     Indication: OBESITY
     Route: 048
     Dates: start: 20050101
  2. MEPTID [Concomitant]
     Indication: PAIN
     Route: 048
  3. AMLODIPINE [Concomitant]
     Route: 048
  4. ASPIRIN [Concomitant]
     Route: 048
  5. NITROGLYCERIN [Concomitant]
     Indication: ANGINA PECTORIS
     Route: 060
  6. SUSCARD BUCCAL [Concomitant]
     Indication: ANGINA PECTORIS
     Route: 048
  7. NICORANDIL [Concomitant]
     Indication: ANGINA PECTORIS
     Route: 048
     Dates: end: 20080608
  8. NICORANDIL [Concomitant]
     Route: 048
     Dates: start: 20080608
  9. TIOTROPIUM [Concomitant]
     Dosage: REPORTED AS TRIOTROPIUM
  10. PERINDOPRIL ERBUMINE [Concomitant]
     Indication: HYPERTENSION
     Route: 048
  11. MONOMAX [Concomitant]
     Route: 048
  12. INDAPAMIDE [Concomitant]
     Indication: HYPERTENSION
     Route: 048
  13. HUMALOG MIX [Concomitant]
     Dosage: REPORTED AS INSULIN HUMALOG MIX 25. 46IU AM AND 50IU PM
     Route: 058
     Dates: start: 19990101
  14. FUROSEMIDE [Concomitant]
     Indication: HYPERTENSION
     Route: 048
  15. METFORMIN HCL [Concomitant]
     Route: 048
  16. ATENOLOL [Concomitant]
     Indication: HYPERTENSION
     Route: 048

REACTIONS (1)
  - ANGINA PECTORIS [None]
